FAERS Safety Report 6582064-2 (Version None)
Quarter: 2010Q1

REPORT INFORMATION
  Report Type: 
  Country: None (occurrence: None)
  Receive Date: 20100215
  Receipt Date: 20100208
  Transmission Date: 20100710
  Serious: Yes (Death, Other)
  Sender: FDA-Public Use
  Company Number: IT-BRISTOL-MYERS SQUIBB COMPANY-14967707

PATIENT
  Age: 34 Year
  Sex: Female

DRUGS (9)
  1. CISPLATIN [Suspect]
     Indication: BONE SARCOMA
  2. IFOSFAMIDE [Suspect]
     Indication: BONE SARCOMA
     Dates: start: 20021001
  3. ETOPOSIDE [Suspect]
     Indication: BONE SARCOMA
  4. HYDROXYCARBAMIDE [Suspect]
     Indication: BONE SARCOMA
  5. DOXORUBICIN [Suspect]
     Indication: BONE SARCOMA
  6. IMATINIB MESILATE [Suspect]
     Indication: BONE SARCOMA
  7. DACARBAZINE [Suspect]
     Indication: BONE SARCOMA
     Dosage: ON DAY 0
  8. TEMOZOLOMIDE [Suspect]
     Indication: BONE SARCOMA
     Dosage: FROM DAY1 TO DAY 8
  9. METHOTREXATE [Suspect]
     Indication: BONE SARCOMA

REACTIONS (2)
  - ACUTE MYELOID LEUKAEMIA [None]
  - MALIGNANT NEOPLASM PROGRESSION [None]
